FAERS Safety Report 24642222 (Version 2)
Quarter: 2025Q1

REPORT INFORMATION
  Report Type: Spontaneous
  Country: LB (occurrence: LB)
  Receive Date: 20241120
  Receipt Date: 20250128
  Transmission Date: 20250409
  Serious: Yes (Death, Hospitalization)
  Sender: PFIZER
  Company Number: LB-PFIZER INC-PV202400148803

PATIENT
  Age: 59 Year
  Sex: Female

DRUGS (2)
  1. IBRANCE [Suspect]
     Active Substance: PALBOCICLIB
     Indication: Breast cancer metastatic
     Route: 048
     Dates: start: 202407, end: 202410
  2. TAXOL [Suspect]
     Active Substance: PACLITAXEL
     Dosage: UNK, WEEKLY

REACTIONS (3)
  - Pneumonia [Fatal]
  - Dyspnoea [Unknown]
  - Neoplasm progression [Unknown]

NARRATIVE: CASE EVENT DATE: 20241101
